FAERS Safety Report 11367092 (Version 1)
Quarter: 2015Q3

REPORT INFORMATION
  Report Type: Spontaneous
  Country: US (occurrence: US)
  Receive Date: 20150811
  Receipt Date: 20150811
  Transmission Date: 20151125
  Serious: No
  Sender: FDA-Public Use
  Company Number: US-ELI_LILLY_AND_COMPANY-US201111007314

PATIENT
  Age: 55 Year
  Sex: Male

DRUGS (2)
  1. TESTOSTERONE. [Concomitant]
     Active Substance: TESTOSTERONE
  2. AXIRON [Suspect]
     Active Substance: TESTOSTERONE
     Indication: HYPOGONADISM MALE
     Dosage: 60 DF, UNK

REACTIONS (3)
  - Loss of libido [Unknown]
  - Tachycardia [Unknown]
  - Chest pain [Unknown]
